FAERS Safety Report 5524339-1 (Version None)
Quarter: 2007Q4

REPORT INFORMATION
  Report Type: 
  Country: None (occurrence: None)
  Receive Date: 20071121
  Receipt Date: 20071114
  Transmission Date: 20080405
  Serious: Yes (Hospitalization, Other)
  Sender: FDA-Public Use
  Company Number: US-PFIZER INC-2007095800

PATIENT
  Sex: Female

DRUGS (2)
  1. CELEBREX [Suspect]
     Indication: JOINT INJURY
  2. ACETYLSALICYLIC ACID SRT [Concomitant]

REACTIONS (3)
  - ARTHROSCOPIC SURGERY [None]
  - KNEE ARTHROPLASTY [None]
  - LICHEN PLANUS [None]
